FAERS Safety Report 4950963-0 (Version None)
Quarter: 2006Q1

REPORT INFORMATION
  Report Type: 
  Country: None (occurrence: None)
  Receive Date: 20060201
  Receipt Date: 20051007
  Transmission Date: 20060701
  Serious: No
  Sender: FDA-Public Use
  Company Number: 2005PV002951

PATIENT
  Age: 73 Year
  Sex: Male
  Weight: 81.6475 kg

DRUGS (10)
  1. BYETTA [Suspect]
     Indication: DIABETES MELLITUS NON-INSULIN-DEPENDENT
     Dosage: 5 MCG;BID;SC
     Route: 058
     Dates: start: 20050822
  2. CELEBREX [Suspect]
     Indication: ARTHRITIS
     Dosage: 200 MG;QD
     Dates: start: 20050930, end: 20051003
  3. LANTUS [Concomitant]
  4. HUMALOG [Concomitant]
  5. ADACAN [Concomitant]
  6. KCI [Concomitant]
  7. METOLAZONE [Concomitant]
  8. FUROSEMIDE [Concomitant]
  9. CRESTOR [Concomitant]
  10. BROMELAN [Concomitant]

REACTIONS (4)
  - BLOOD POTASSIUM DECREASED [None]
  - NAUSEA [None]
  - NECK PAIN [None]
  - PAIN IN EXTREMITY [None]
